FAERS Safety Report 24976907 (Version 1)
Quarter: 2025Q1

REPORT INFORMATION
  Report Type: Spontaneous
  Country: HR (occurrence: HR)
  Receive Date: 20250217
  Receipt Date: 20250217
  Transmission Date: 20250408
  Serious: Yes (Other)
  Sender: PFIZER
  Company Number: HR-PFIZER INC-PV202500017720

PATIENT
  Age: 72 Year
  Sex: Female

DRUGS (1)
  1. LORLATINIB [Suspect]
     Active Substance: LORLATINIB
     Indication: Non-small cell lung cancer

REACTIONS (6)
  - Meningioma [Unknown]
  - Second primary malignancy [Unknown]
  - Pleural effusion [Unknown]
  - Atelectasis [Unknown]
  - Oedema [Unknown]
  - Hypercholesterolaemia [Unknown]
